FAERS Safety Report 5121688-6 (Version None)
Quarter: 2006Q4

REPORT INFORMATION
  Report Type: 
  Country: None (occurrence: None)
  Receive Date: 20061006
  Receipt Date: 20051026
  Transmission Date: 20070319
  Serious: Yes (Life-Threatening, Hospitalization)
  Sender: FDA-Public Use
  Company Number: JP-GLAXOSMITHKLINE-B0398617A

PATIENT
  Age: 28 Year
  Sex: Male

DRUGS (16)
  1. EPIVIR [Suspect]
     Indication: ACQUIRED IMMUNODEFICIENCY SYNDROME
     Dosage: 150MG TWICE PER DAY
     Route: 048
     Dates: start: 20031127
  2. ZIAGEN [Suspect]
     Indication: ACQUIRED IMMUNODEFICIENCY SYNDROME
     Dosage: 300MG TWICE PER DAY
     Route: 048
     Dates: start: 20031127
  3. NORVIR [Suspect]
     Indication: ACQUIRED IMMUNODEFICIENCY SYNDROME
     Dosage: 100MG PER DAY
     Route: 048
     Dates: start: 20040706, end: 20040722
  4. KALETRA [Suspect]
     Indication: ACQUIRED IMMUNODEFICIENCY SYNDROME
     Dosage: 6CAP PER DAY
     Route: 048
     Dates: start: 20031127, end: 20040216
  5. ATAZANAVIR [Suspect]
     Indication: ACQUIRED IMMUNODEFICIENCY SYNDROME
     Dosage: 300MG PER DAY
     Route: 048
     Dates: start: 20040706, end: 20040722
  6. TENOFOVIR DISOPROXIL FUMARATE [Suspect]
     Indication: ACQUIRED IMMUNODEFICIENCY SYNDROME
     Dosage: 300MG PER DAY
     Route: 048
     Dates: start: 20040706
  7. VALIXA [Concomitant]
     Route: 048
     Dates: start: 20041222, end: 20050202
  8. CLARITHROMYCIN [Concomitant]
     Indication: MYCOBACTERIUM AVIUM COMPLEX INFECTION
     Dosage: 400MG TWICE PER DAY
     Route: 048
     Dates: start: 20041013, end: 20041202
  9. URSO [Concomitant]
     Indication: HEPATITIS C
     Dosage: 200MG THREE TIMES PER DAY
     Route: 048
     Dates: start: 20031127, end: 20031224
  10. BACTRIM [Concomitant]
     Dosage: 480MG PER DAY
     Route: 048
     Dates: start: 20040225
  11. PROGRAF [Concomitant]
     Indication: PROPHYLAXIS AGAINST TRANSPLANT REJECTION
     Dosage: .5MG TWICE PER DAY
     Route: 048
     Dates: start: 20040227, end: 20040506
  12. FUNGIZONE [Concomitant]
     Indication: ORAL CANDIDIASIS
     Dosage: 1ML TWICE PER DAY
     Route: 048
     Dates: start: 20040305
  13. NEORAL [Concomitant]
     Indication: PROPHYLAXIS AGAINST TRANSPLANT REJECTION
     Dosage: 50MG TWICE PER DAY
     Route: 048
     Dates: start: 20040507, end: 20041103
  14. ESANBUTOL [Concomitant]
     Indication: MYCOBACTERIUM AVIUM COMPLEX INFECTION
     Dosage: 250MG TWICE PER DAY
     Route: 048
     Dates: start: 20041013, end: 20041202
  15. AZITHROMYCIN [Concomitant]
     Dosage: 500MG WEEKLY
     Route: 048
     Dates: start: 20040922, end: 20041012
  16. INTERFERON [Concomitant]
     Indication: HEPATITIS C
     Route: 042
     Dates: start: 20041119, end: 20050331

REACTIONS (7)
  - HAEMATOMA EVACUATION [None]
  - HEADACHE [None]
  - HEPATIC FUNCTION ABNORMAL [None]
  - JAUNDICE [None]
  - ORAL CANDIDIASIS [None]
  - SUBDURAL HAEMATOMA [None]
  - VOMITING [None]
